FAERS Safety Report 7656525-9 (Version None)
Quarter: 2011Q3

REPORT INFORMATION
  Report Type: 
  Country: None (occurrence: None)
  Receive Date: 20110804
  Receipt Date: 20101018
  Transmission Date: 20111222
  Serious: No
  Sender: FDA-Public Use
  Company Number: US-BAUSCH-2010BL005884

PATIENT
  Sex: Female

DRUGS (3)
  1. CROLOM OPHTHALMIC SOLUTION [Concomitant]
     Indication: MULTIPLE ALLERGIES
     Route: 047
  2. OPCON-A [Suspect]
     Indication: EYE ALLERGY
     Route: 047
  3. OPCON-A [Suspect]
     Route: 047
     Dates: start: 20101012

REACTIONS (2)
  - EYE SWELLING [None]
  - DRUG EFFECT DECREASED [None]
